FAERS Safety Report 19486614 (Version 3)
Quarter: 2021Q3

REPORT INFORMATION
  Report Type: Spontaneous
  Country: RO (occurrence: RO)
  Receive Date: 20210702
  Receipt Date: 20210726
  Transmission Date: 20211014
  Serious: Yes (Other)
  Sender: FDA-Public Use
  Company Number: RO-SUN PHARMACEUTICAL INDUSTRIES LTD-2021RR-302841

PATIENT
  Age: 45 Year
  Sex: Male

DRUGS (2)
  1. CODAMIN P TABLETS [Suspect]
     Active Substance: ACETAMINOPHEN\CAFFEINE\CODEINE PHOSPHATE
     Dosage: 35?40 TABLETS PER DAY, SOMETIMES I REACH 50 TABLETS DAILY
     Route: 065
  2. CODAMIN P TABLETS [Suspect]
     Active Substance: ACETAMINOPHEN\CAFFEINE\CODEINE PHOSPHATE
     Indication: TOOTHACHE
     Dosage: 20?30 TABLETS DAILY
     Route: 065

REACTIONS (3)
  - Drug abuse [Unknown]
  - Drug dependence [Unknown]
  - Withdrawal syndrome [Unknown]
